FAERS Safety Report 13005823 (Version 1)
Quarter: 2016Q4

REPORT INFORMATION
  Report Type: Report from Study
  Country: NL (occurrence: NL)
  Receive Date: 20161207
  Receipt Date: 20161207
  Transmission Date: 20170207
  Serious: Yes (Hospitalization)
  Sender: FDA-Public Use
  Company Number: NL-ASTRAZENECA-2016SF26962

PATIENT
  Age: 23789 Day
  Sex: Female

DRUGS (2)
  1. RADIOTHERAPY [Suspect]
     Active Substance: RADIATION THERAPY
     Indication: NON-SMALL CELL LUNG CANCER
     Dosage: 24*2.75=66 GY DAILY
     Route: 065
     Dates: start: 20160919, end: 20161020
  2. AZD2281 [Suspect]
     Active Substance: OLAPARIB
     Indication: NON-SMALL CELL LUNG CANCER
     Route: 048
     Dates: start: 20160917, end: 20161022

REACTIONS (1)
  - Radiation pneumonitis [Recovering/Resolving]

NARRATIVE: CASE EVENT DATE: 20161128
